FAERS Safety Report 6399355-0 (Version None)
Quarter: 2009Q4

REPORT INFORMATION
  Report Type: 
  Country: None (occurrence: None)
  Receive Date: 20091014
  Receipt Date: 20070817
  Transmission Date: 20100525
  Serious: Yes (Hospitalization, Other)
  Sender: FDA-Public Use
  Company Number: US-ASTRAZENECA-2007UW15784

PATIENT
  Age: 18268 Day
  Sex: Female
  Weight: 72.1 kg

DRUGS (13)
  1. SEROQUEL [Suspect]
     Indication: DEPRESSION
     Dosage: 50-900 MG
     Route: 048
     Dates: start: 20020924
  2. SEROQUEL [Suspect]
     Indication: AGITATION
     Dosage: 50-900 MG
     Route: 048
     Dates: start: 20020924
  3. SEROQUEL [Suspect]
     Dosage: FREQUENCY :DAILY AND TOTAL DAILY DOSE -1200 MG
     Route: 048
     Dates: start: 20021001, end: 20070501
  4. SEROQUEL [Suspect]
     Dosage: FREQUENCY :DAILY AND TOTAL DAILY DOSE -1200 MG
     Route: 048
     Dates: start: 20021001, end: 20070501
  5. SLIM-QUICK [Concomitant]
  6. ALPRAZOLAM [Concomitant]
     Indication: ANXIETY
     Route: 048
     Dates: start: 20020924
  7. ARIPIPRAZOLE [Concomitant]
     Route: 048
     Dates: start: 20060806
  8. SYNTHROID [Concomitant]
     Dosage: 0.075 - 0.2 MG
     Route: 048
     Dates: start: 19970727
  9. SIMVASTATIN [Concomitant]
     Dosage: 20-40 MG
     Route: 048
     Dates: start: 20020924
  10. PAXIL [Concomitant]
     Dosage: 10-40 MG
     Route: 048
     Dates: start: 19990811
  11. TRAZODONE [Concomitant]
     Route: 048
     Dates: start: 20020924
  12. ATIVAN [Concomitant]
     Indication: ANXIETY
     Dosage: 0.5 - 1 MG
     Route: 048
     Dates: start: 20020426
  13. HALDOL [Concomitant]
     Dosage: 5 -17 MG
     Route: 048
     Dates: start: 20050602

REACTIONS (2)
  - PANCREATITIS ACUTE [None]
  - PERICARDITIS [None]
